FAERS Safety Report 22160738 (Version 3)
Quarter: 2023Q2

REPORT INFORMATION
  Report Type: Spontaneous
  Country: US (occurrence: US)
  Receive Date: 20230331
  Receipt Date: 20230412
  Transmission Date: 20230722
  Serious: Yes (Hospitalization, Other)
  Sender: FDA-Public Use
  Company Number: US-UNITED THERAPEUTICS-UNT-2023-008847

PATIENT
  Age: 87 Year
  Sex: Female
  Weight: 63.946 kg

DRUGS (3)
  1. REMODULIN [Suspect]
     Active Substance: TREPROSTINIL
     Indication: Pulmonary arterial hypertension
     Dosage: 0.094 ?G/KG, CONTINUING (SELF-FILL WITH 3 ML PER CASSETTE AT A RATE OF 44 MCL PER HOUR)
     Route: 058
  2. REMODULIN [Suspect]
     Active Substance: TREPROSTINIL
     Dosage: UNK, CONTINUING
     Route: 058
     Dates: start: 20230217
  3. ADCIRCA [Suspect]
     Active Substance: TADALAFIL
     Indication: Pulmonary arterial hypertension
     Dosage: UNK
     Route: 065

REACTIONS (9)
  - Extra dose administered [Recovered/Resolved]
  - Chills [Unknown]
  - Feeling cold [Unknown]
  - Dyspnoea [Unknown]
  - Neuropathy peripheral [Unknown]
  - Constipation [Unknown]
  - Device wireless communication issue [Recovered/Resolved]
  - Device leakage [Recovered/Resolved]
  - Device failure [Recovered/Resolved]

NARRATIVE: CASE EVENT DATE: 20230301
